FAERS Safety Report 24583459 (Version 3)
Quarter: 2024Q4

REPORT INFORMATION
  Report Type: Spontaneous
  Country: US (occurrence: TR)
  Receive Date: 20241106
  Receipt Date: 20241202
  Transmission Date: 20250115
  Serious: No
  Sender: ROCHE
  Company Number: TR-ROCHE-10000087719

PATIENT

DRUGS (3)
  1. KADCYLA [Suspect]
     Active Substance: ADO-TRASTUZUMAB EMTANSINE
     Indication: Breast cancer
     Route: 065
  2. KADCYLA [Suspect]
     Active Substance: ADO-TRASTUZUMAB EMTANSINE
     Route: 065
  3. KADCYLA [Suspect]
     Active Substance: ADO-TRASTUZUMAB EMTANSINE
     Route: 065

REACTIONS (4)
  - Anaemia [Unknown]
  - Product barcode issue [Unknown]
  - Platelet count decreased [Unknown]
  - Suspected counterfeit product [Unknown]
